FAERS Safety Report 9645724 (Version 1)
Quarter: 2013Q4

REPORT INFORMATION
  Report Type: Spontaneous
  Country: US (occurrence: None)
  Receive Date: 20131024
  Receipt Date: 20131024
  Transmission Date: 20140711
  Serious: Yes (Hospitalization, Other)
  Sender: FDA-Public Use
  Company Number: None

PATIENT
  Age: 27 Year
  Sex: Female
  Weight: 106.6 kg

DRUGS (5)
  1. CITALOPRAM [Suspect]
     Indication: DEPRESSION
     Dosage: ONE PILL
     Route: 048
     Dates: start: 20130627, end: 20130928
  2. OMERAZOLE DR 20 MG [Concomitant]
  3. IBUPROFEN 600MG [Concomitant]
  4. SUBOXONE [Concomitant]
  5. XANEX 0.5 MG [Concomitant]

REACTIONS (7)
  - Oedema [None]
  - Discomfort [None]
  - No therapeutic response [None]
  - Fluid retention [None]
  - Swelling [None]
  - Stress [None]
  - Depression [None]
